FAERS Safety Report 7956568-1 (Version None)
Quarter: 2011Q4

REPORT INFORMATION
  Report Type: 
  Country: None (occurrence: None)
  Receive Date: 20111205
  Receipt Date: 20111129
  Transmission Date: 20120403
  Serious: Yes (Death, Hospitalization, Other)
  Sender: FDA-Public Use
  Company Number: US-JNJFOC-20111200923

PATIENT
  Age: 39 Year
  Sex: Male

DRUGS (26)
  1. DOXORUBICIN HCL [Suspect]
     Route: 042
  2. CYCLOPHOSPHAMIDE [Suspect]
     Indication: B-CELL LYMPHOMA
     Route: 065
  3. CYCLOPHOSPHAMIDE [Suspect]
     Route: 065
  4. VINCRISTINE [Suspect]
     Route: 065
  5. VINCRISTINE [Suspect]
     Route: 065
  6. VINCRISTINE [Suspect]
     Route: 065
  7. PREDNISONE [Suspect]
     Route: 065
  8. PREDNISONE [Suspect]
     Route: 065
  9. PREDNISONE [Suspect]
     Route: 065
  10. VINCRISTINE [Suspect]
     Indication: B-CELL LYMPHOMA
     Route: 065
  11. VINCRISTINE [Suspect]
     Route: 065
  12. DOXORUBICIN HCL [Suspect]
     Indication: B-CELL LYMPHOMA
     Route: 042
  13. DOXORUBICIN HCL [Suspect]
     Route: 042
  14. PREDNISONE [Suspect]
     Route: 065
  15. DOXORUBICIN HCL [Suspect]
     Route: 042
  16. CYCLOPHOSPHAMIDE [Suspect]
     Route: 065
  17. CYCLOPHOSPHAMIDE [Suspect]
     Route: 065
  18. PREDNISONE [Suspect]
     Route: 065
  19. DOXORUBICIN HCL [Suspect]
     Route: 042
  20. CYCLOPHOSPHAMIDE [Suspect]
     Route: 065
  21. RITUXIMAB [Suspect]
     Route: 065
  22. VINCRISTINE [Suspect]
     Route: 065
  23. DOXORUBICIN HCL [Suspect]
     Route: 042
  24. RITUXIMAB [Suspect]
     Indication: B-CELL LYMPHOMA
     Route: 065
  25. CYCLOPHOSPHAMIDE [Suspect]
     Route: 065
  26. PREDNISONE [Suspect]
     Indication: B-CELL LYMPHOMA
     Route: 065

REACTIONS (1)
  - PARANEOPLASTIC PEMPHIGUS [None]
